FAERS Safety Report 5612110-1 (Version None)
Quarter: 2008Q1

REPORT INFORMATION
  Report Type: 
  Country: None (occurrence: None)
  Receive Date: 20080204
  Receipt Date: 20080124
  Transmission Date: 20080703
  Serious: Yes (Hospitalization, Other)
  Sender: FDA-Public Use
  Company Number: PHHY2007BR01162

PATIENT
  Age: 60 Year
  Sex: Male
  Weight: 100 kg

DRUGS (5)
  1. EXFORGE [Suspect]
     Indication: HYPERTENSION
     Dosage: 160/5 MG
     Route: 048
     Dates: start: 20070501
  2. EXFORGE [Suspect]
     Dosage: 80/5 MG
     Route: 048
  3. EXFORGE [Suspect]
     Dosage: 160/5 MG
  4. OMEPRAZOLE [Concomitant]
     Indication: GASTRITIS
     Dosage: 40 MG, QD
     Route: 048
  5. UNOPROST [Concomitant]

REACTIONS (5)
  - BACK PAIN [None]
  - BLOOD PRESSURE FLUCTUATION [None]
  - CHOLECYSTECTOMY [None]
  - ERYTHEMA [None]
  - GALLBLADDER DISORDER [None]
